FAERS Safety Report 25481852 (Version 1)
Quarter: 2025Q2

REPORT INFORMATION
  Report Type: Spontaneous
  Country: US (occurrence: US)
  Receive Date: 20250626
  Receipt Date: 20250626
  Transmission Date: 20250717
  Serious: No
  Sender: JOHNSON AND JOHNSON
  Company Number: US-JNJFOC-20250631965

PATIENT
  Age: 36 Year
  Sex: Male

DRUGS (2)
  1. RILPIVIRINE [Suspect]
     Active Substance: RILPIVIRINE
     Indication: HIV infection
     Dosage: UNK, Q2M 600/900MG/3ML
     Route: 030
     Dates: start: 20221201, end: 20250528
  2. CABOTEGRAVIR [Suspect]
     Active Substance: CABOTEGRAVIR
     Indication: HIV infection
     Dosage: UNK, Q2M 600/900MG/3ML
     Route: 030
     Dates: start: 20221201, end: 20250528

REACTIONS (3)
  - Injection site pain [Unknown]
  - Myalgia [Unknown]
  - Arthralgia [Unknown]
